FAERS Safety Report 26077955 (Version 1)
Quarter: 2025Q4

REPORT INFORMATION
  Report Type: Spontaneous
  Country: US (occurrence: US)
  Receive Date: 20251122
  Receipt Date: 20251122
  Transmission Date: 20260118
  Serious: No
  Sender: MDD OPERATIONS
  Company Number: US-MDD US Operations-MDD202509-003853

PATIENT
  Age: 81 Year
  Sex: Female

DRUGS (2)
  1. ONAPGO [Suspect]
     Active Substance: APOMORPHINE HYDROCHLORIDE
     Indication: Parkinson^s disease
     Dosage: 5MG PER HOUR, 15-16 HOURS A DAY
     Dates: start: 20250722
  2. ONAPGO [Suspect]
     Active Substance: APOMORPHINE HYDROCHLORIDE
     Dosage: NOT PROVIDED
     Route: 058

REACTIONS (4)
  - Fall [Unknown]
  - Product dose omission issue [Unknown]
  - Product supply issue [Unknown]
  - Device occlusion [Unknown]
